FAERS Safety Report 5115683-0 (Version None)
Quarter: 2006Q3

REPORT INFORMATION
  Report Type: 
  Country: None (occurrence: None)
  Receive Date: 20060926
  Receipt Date: 20060926
  Transmission Date: 20061208
  Serious: Yes (Other)
  Sender: FDA-Public Use
  Company Number: None

PATIENT
  Age: 51 Year
  Sex: Male
  Weight: 85.3 kg

DRUGS (7)
  1. CITALOPRAM HYDROBROMIDE [Suspect]
  2. LIDOCAINE [Concomitant]
  3. CLARITHROMYCIN [Concomitant]
  4. TRAMADOL HCL [Concomitant]
  5. OMEPRAZOLE [Concomitant]
  6. METOPROLOL TARTRATE [Concomitant]
  7. LISINOPRIL [Concomitant]

REACTIONS (1)
  - NIGHTMARE [None]
